FAERS Safety Report 9289865 (Version 1)
Quarter: 2013Q2

REPORT INFORMATION
  Report Type: Report from Study
  Country: CA (occurrence: CA)
  Receive Date: 20130515
  Receipt Date: 20130515
  Transmission Date: 20140414
  Serious: Yes (Other)
  Sender: FDA-Public Use
  Company Number: PHHY2013CA043906

PATIENT
  Sex: Female

DRUGS (3)
  1. CLOZARIL [Suspect]
     Indication: SCHIZOPHRENIA
     Dosage: 200 UNK, UNK
     Route: 048
     Dates: start: 20080527, end: 20130426
  2. EFEXOR XR [Concomitant]
     Dosage: 150 MG,PER DAY
  3. CLONAZEPAM [Concomitant]
     Indication: DEPRESSION
     Dosage: 0.5 MG, BID

REACTIONS (6)
  - Obesity [Recovering/Resolving]
  - Weight increased [Recovering/Resolving]
  - Dyspnoea [Unknown]
  - Palpitations [Unknown]
  - Stress [Unknown]
  - Increased appetite [Unknown]
